FAERS Safety Report 8845460 (Version 2)
Quarter: 2013Q1

REPORT INFORMATION
  Report Type: Spontaneous
  Country: US (occurrence: None)
  Receive Date: 20121015
  Receipt Date: 20121031
  Transmission Date: 20140127
  Serious: Yes (Other)
  Sender: FDA-Public Use
  Company Number: DSA_59047_2012

PATIENT
  Sex: Female
  Weight: 56.7 kg

DRUGS (1)
  1. XENAZINE 12.5 MG (NOT SPECIFIED) [Suspect]
     Indication: HUNTINGTON^S DISEASE
     Dosage: (HALF OF A 12.5 MG TABLET TWICE DAILY ORAL)
     Route: 048
     Dates: start: 20120728, end: 2012

REACTIONS (8)
  - Crying [None]
  - Restlessness [None]
  - Somnolence [None]
  - Insomnia [None]
  - Fall [None]
  - Fractured coccyx [None]
  - Loss of consciousness [None]
  - Head injury [None]
